FAERS Safety Report 5069187-4 (Version None)
Quarter: 2006Q3

REPORT INFORMATION
  Report Type: 
  Country: None (occurrence: None)
  Receive Date: 20060803
  Receipt Date: 20060725
  Transmission Date: 20061208
  Serious: Yes (Hospitalization)
  Sender: FDA-Public Use
  Company Number: FR-SP-2006-01959

PATIENT

DRUGS (1)
  1. IMMUCYST [Suspect]
     Route: 065

REACTIONS (1)
  - ARTHRALGIA [None]
